FAERS Safety Report 23983124 (Version 1)
Quarter: 2024Q2

REPORT INFORMATION
  Report Type: Spontaneous
  Country: AU (occurrence: AU)
  Receive Date: 20240617
  Receipt Date: 20240617
  Transmission Date: 20240716
  Serious: Yes (Other)
  Sender: FDA-Public Use
  Company Number: AU-BRISTOL-MYERS SQUIBB COMPANY-2024-092122

PATIENT
  Age: 83 Year
  Sex: Male

DRUGS (1)
  1. TRIAMCINOLONE ACETONIDE [Suspect]
     Active Substance: TRIAMCINOLONE ACETONIDE
     Indication: Cystoid macular oedema
     Dosage: SINGLE DOSE SUB-TENON^S TRIAMCINOLONE ACETONIDE

REACTIONS (4)
  - Staphylococcal infection [Recovering/Resolving]
  - Orbital compartment syndrome [Recovering/Resolving]
  - Off label use [Unknown]
  - Periorbital abscess [Recovering/Resolving]
